FAERS Safety Report 15397317 (Version 4)
Quarter: 2020Q1

REPORT INFORMATION
  Report Type: Spontaneous
  Country: NL (occurrence: NL)
  Receive Date: 20180918
  Receipt Date: 20200127
  Transmission Date: 20200409
  Serious: Yes (Hospitalization, Other)
  Sender: FDA-Public Use
  Company Number: NL-MYLANLABS-2018M1067218

PATIENT
  Age: 87 Year
  Sex: Male

DRUGS (6)
  1. TELMISARTAN SANDOZ [Suspect]
     Active Substance: TELMISARTAN
     Indication: CARDIAC FAILURE
     Dosage: HIGHEST DOSE
     Route: 065
  2. FUROSEMIDE. [Suspect]
     Active Substance: FUROSEMIDE
     Indication: CARDIAC FAILURE
     Dosage: UNK
     Route: 065
  3. ALFUZOSIN HYDROCHLORIDE. [Suspect]
     Active Substance: ALFUZOSIN HYDROCHLORIDE
     Indication: CARDIAC FAILURE
     Dosage: UNK
     Route: 065
  4. COMBODART [Suspect]
     Active Substance: DUTASTERIDE\TAMSULOSIN
     Indication: CARDIAC FAILURE
     Dosage: UNK
     Route: 065
  5. HYDROCHLOROTHIAZIDE. [Suspect]
     Active Substance: HYDROCHLOROTHIAZIDE
     Indication: CARDIAC FAILURE
     Dosage: UNK
     Route: 065
  6. SOTALOL HYDROCHLORIDE. [Suspect]
     Active Substance: SOTALOL HYDROCHLORIDE
     Indication: CARDIAC FAILURE
     Dosage: HIGH DOSE
     Route: 065

REACTIONS (9)
  - Loss of consciousness [Recovered/Resolved]
  - Petit mal epilepsy [Not Recovered/Not Resolved]
  - Pallor [Recovered/Resolved]
  - Blood pressure decreased [Unknown]
  - Incontinence [Recovered/Resolved]
  - Dissociation [Recovered/Resolved]
  - Staring [Unknown]
  - Hyperhidrosis [Unknown]
  - Daydreaming [Unknown]
